FAERS Safety Report 8543539-X (Version None)
Quarter: 2012Q3

REPORT INFORMATION
  Report Type: 
  Country: None (occurrence: None)
  Receive Date: 20120719
  Receipt Date: 20120719
  Transmission Date: 20120928
  Serious: No
  Sender: FDA-Public Use
  Company Number: None

PATIENT
  Sex: Female
  Weight: 86.1834 kg

DRUGS (6)
  1. LEVAQUIN [Suspect]
     Indication: SINUSITIS
     Dosage: 500 MG ONE QD PO
     Route: 048
     Dates: start: 20110701
  2. LEVAQUIN [Suspect]
     Indication: SINUSITIS
     Dosage: 500 MG ONE QD PO
     Route: 048
     Dates: start: 20110501
  3. LEVAQUIN [Suspect]
     Indication: SINUSITIS
     Dosage: 500 MG ONE QD PO
     Route: 048
     Dates: start: 20110301
  4. LEVAQUIN [Suspect]
     Indication: SINUSITIS
     Dosage: 500 MG ONE QD PO
     Route: 048
     Dates: start: 20100301
  5. LEVAQUIN [Suspect]
     Indication: SINUSITIS
     Dosage: 500 MG ONE QD PO
     Route: 048
     Dates: start: 20111119
  6. LEVAQUIN [Suspect]
     Indication: SINUSITIS
     Dosage: 500 MG ONE QD PO
     Route: 048
     Dates: start: 20100501

REACTIONS (7)
  - TENDONITIS [None]
  - GAIT DISTURBANCE [None]
  - ACTIVITIES OF DAILY LIVING IMPAIRED [None]
  - PAROSMIA [None]
  - AGEUSIA [None]
  - ARTHRALGIA [None]
  - ASTHMA [None]
